FAERS Safety Report 4604931-9 (Version None)
Quarter: 2005Q1

REPORT INFORMATION
  Report Type: 
  Country: None (occurrence: None)
  Receive Date: 20050310
  Receipt Date: 20050310
  Transmission Date: 20050727
  Serious: Yes (Hospitalization)
  Sender: FDA-Public Use
  Company Number: None

PATIENT
  Age: 82 Year
  Sex: Female
  Weight: 56.6996 kg

DRUGS (2)
  1. CISPLATIN [Suspect]
     Indication: ANAL CANCER
     Dosage: 128 MG X 1 DAY INTRAVENOUS
     Route: 042
     Dates: start: 20050110, end: 20050110
  2. FLUOROURACIL [Suspect]
     Indication: ANAL CANCER
     Dosage: 1700 MG/DAY OVER 4 DAYS INTRAVENOUS
     Route: 042
     Dates: start: 20050110, end: 20050113

REACTIONS (3)
  - ANAEMIA [None]
  - BODY TEMPERATURE INCREASED [None]
  - CHEST PAIN [None]
